FAERS Safety Report 9191344 (Version 3)
Quarter: 2013Q2

REPORT INFORMATION
  Report Type: Spontaneous
  Country: JP (occurrence: JP)
  Receive Date: 20130326
  Receipt Date: 20130408
  Transmission Date: 20140414
  Serious: Yes (Hospitalization)
  Sender: FDA-Public Use
  Company Number: JP-BAYER-2013-036880

PATIENT
  Age: 74 Year
  Sex: Female

DRUGS (1)
  1. BAYASPIRIN [Suspect]
     Indication: MYOCARDIAL INFARCTION
     Dosage: UNK
     Route: 048

REACTIONS (2)
  - Small intestinal haemorrhage [Recovering/Resolving]
  - Gastrointestinal angiodysplasia [Recovering/Resolving]
